FAERS Safety Report 4987300-1 (Version None)
Quarter: 2006Q2

REPORT INFORMATION
  Report Type: 
  Country: None (occurrence: None)
  Receive Date: 20060501
  Receipt Date: 20051123
  Transmission Date: 20061013
  Serious: Yes (Hospitalization, Disabling)
  Sender: FDA-Public Use
  Company Number: US-MERCK-0511USA04115

PATIENT
  Age: 59 Year
  Sex: Female
  Weight: 61 kg

DRUGS (27)
  1. METHOCARBAMOL [Concomitant]
     Indication: MUSCLE RELAXANT THERAPY
     Route: 065
  2. SKELAXIN [Concomitant]
     Indication: MUSCLE RELAXANT THERAPY
     Route: 065
  3. SONATA [Concomitant]
     Indication: INSOMNIA
     Route: 065
  4. TOBRADEX [Concomitant]
     Indication: EYE INFECTION
     Route: 065
  5. VIOXX [Suspect]
     Indication: BACK PAIN
     Route: 048
     Dates: start: 19990801, end: 20040901
  6. IBUPROFEN [Concomitant]
     Indication: PAIN
     Route: 065
  7. NEURONTIN [Concomitant]
     Indication: PAIN
     Route: 065
     Dates: start: 20011114, end: 20041201
  8. ESTRATEST [Concomitant]
     Indication: HORMONE REPLACEMENT THERAPY
     Route: 065
     Dates: start: 20010101, end: 20010501
  9. ESTRADIOL [Concomitant]
     Indication: HORMONE REPLACEMENT THERAPY
     Route: 065
     Dates: start: 19980301, end: 20010101
  10. FEMHRT [Concomitant]
     Indication: HORMONE REPLACEMENT THERAPY
     Route: 065
     Dates: start: 20010401, end: 20041201
  11. [THERAPY UNSPECIFIED] [Concomitant]
     Indication: HORMONE REPLACEMENT THERAPY
     Route: 065
     Dates: start: 19981001, end: 20010401
  12. PAXIL [Concomitant]
     Indication: DEPRESSION
     Route: 065
     Dates: start: 19980801, end: 20000301
  13. WELLBUTRIN [Concomitant]
     Indication: EX-SMOKER
     Route: 065
     Dates: start: 20011001, end: 20020601
  14. TRAZODONE HYDROCHLORIDE [Concomitant]
     Indication: PAIN
     Route: 065
     Dates: start: 20030501, end: 20030601
  15. AMOXICILLIN [Concomitant]
     Indication: INFECTION
     Route: 065
  16. LEVAQUIN [Concomitant]
     Indication: INFECTION
     Route: 065
  17. TEQUIN [Concomitant]
     Indication: INFECTION
     Route: 065
  18. ZITHROMAX [Concomitant]
     Indication: INFECTION
     Route: 065
  19. CORDRAN [Concomitant]
     Indication: SKIN DISORDER
     Route: 065
  20. DERMATOP [Concomitant]
     Indication: SKIN DISORDER
     Route: 065
  21. DESOWEN [Concomitant]
     Indication: SKIN DISORDER
     Route: 065
  22. ELOCON [Concomitant]
     Indication: SKIN DISORDER
     Route: 065
  23. TRIAMCINOLONE [Concomitant]
     Indication: SKIN DISORDER
     Route: 065
  24. HYDROXYZINE HYDROCHLORIDE [Concomitant]
     Indication: SKIN DISORDER
     Route: 065
  25. FLONASE [Concomitant]
     Indication: HYPERSENSITIVITY
     Route: 065
  26. MECLIZINE [Concomitant]
     Indication: NAUSEA
     Route: 065
  27. MECLIZINE [Concomitant]
     Indication: DIZZINESS
     Route: 065

REACTIONS (21)
  - BACK PAIN [None]
  - CARPAL TUNNEL SYNDROME [None]
  - CHEST PAIN [None]
  - CHILLS [None]
  - CORONARY ARTERY DISEASE [None]
  - CORONARY ARTERY OCCLUSION [None]
  - DYSPHAGIA [None]
  - DYSPHONIA [None]
  - DYSPNOEA [None]
  - GASTROOESOPHAGEAL REFLUX DISEASE [None]
  - HIATUS HERNIA [None]
  - HYPERLIPIDAEMIA [None]
  - INFLUENZA LIKE ILLNESS [None]
  - MYOCARDIAL INFARCTION [None]
  - PHLEBITIS [None]
  - PRODUCTIVE COUGH [None]
  - PYREXIA [None]
  - RHINITIS ALLERGIC [None]
  - SPUTUM DISCOLOURED [None]
  - TACHYCARDIA [None]
  - VERTIGO [None]
